FAERS Safety Report 6940064-4 (Version None)
Quarter: 2010Q3

REPORT INFORMATION
  Report Type: 
  Country: None (occurrence: None)
  Receive Date: 20100825
  Receipt Date: 20100820
  Transmission Date: 20110219
  Serious: Yes (Death, Life-Threatening, Hospitalization, Other)
  Sender: FDA-Public Use
  Company Number: PHHY2010JP32692

PATIENT
  Sex: Male
  Weight: 97 kg

DRUGS (7)
  1. RASILEZ [Suspect]
     Indication: HYPERTENSION
     Dosage: 150 MG, DAILY
     Route: 048
     Dates: start: 20100125, end: 20100401
  2. ASPIRIN [Suspect]
     Indication: ARTERIAL OCCLUSIVE DISEASE
     Dosage: 100 MG DAILY DOSE
     Route: 048
     Dates: start: 20100201, end: 20100401
  3. DORNER [Suspect]
     Indication: ARTERIAL OCCLUSIVE DISEASE
     Dosage: 120 MCG DAILY DOSE
     Route: 048
     Dates: start: 20100201, end: 20100401
  4. CALCIUM CARBONATE [Concomitant]
     Indication: HYPERTENSION
     Dosage: 3000 MG
     Route: 048
     Dates: start: 20090814, end: 20100401
  5. ATELEC [Concomitant]
     Indication: HYPERTENSION
     Dosage: 10 MG
     Route: 048
     Dates: start: 20090814, end: 20100401
  6. NESP [Concomitant]
     Indication: NEPHROGENIC ANAEMIA
     Dosage: 10 MCG
     Route: 042
     Dates: start: 20090814, end: 20100401
  7. ROCALTROL [Concomitant]
     Indication: HYPERPARATHYROIDISM
     Dosage: 1 MCG
     Route: 042
     Dates: start: 20090814, end: 20100401

REACTIONS (6)
  - BLOOD PRESSURE INADEQUATELY CONTROLLED [None]
  - CARDIO-RESPIRATORY ARREST [None]
  - CEREBRAL HAEMORRHAGE [None]
  - FALL [None]
  - HYPERTENSION [None]
  - LOSS OF CONSCIOUSNESS [None]
